FAERS Safety Report 6822251-9 (Version None)
Quarter: 2010Q3

REPORT INFORMATION
  Report Type: 
  Country: None (occurrence: None)
  Receive Date: 20100707
  Receipt Date: 20100707
  Transmission Date: 20110219
  Serious: Yes (Life-Threatening, Hospitalization)
  Sender: FDA-Public Use
  Company Number: None

PATIENT
  Age: 65 Year
  Sex: Female
  Weight: 83.4619 kg

DRUGS (4)
  1. NALFON [Suspect]
     Indication: ANALGESIC THERAPY
     Dosage: 1 TAB OF 400 MG QD PO
     Route: 048
     Dates: start: 20100622, end: 20100624
  2. NALFON [Suspect]
     Indication: INFLAMMATION
     Dosage: 1 TAB OF 400 MG QD PO
     Route: 048
     Dates: start: 20100622, end: 20100624
  3. COLACE [Concomitant]
  4. MULTIVITIMINS [Concomitant]

REACTIONS (7)
  - ANAEMIA [None]
  - ASTHENIA [None]
  - FAECES DISCOLOURED [None]
  - GASTRIC ULCER [None]
  - GASTROINTESTINAL HAEMORRHAGE [None]
  - HAEMATOCRIT DECREASED [None]
  - PRESYNCOPE [None]
